FAERS Safety Report 4565273-3 (Version None)
Quarter: 2005Q1

REPORT INFORMATION
  Report Type: 
  Country: None (occurrence: None)
  Receive Date: 20050131
  Receipt Date: 20050120
  Transmission Date: 20050727
  Serious: Yes (Other)
  Sender: FDA-Public Use
  Company Number: US-ROCHE-393200

PATIENT
  Age: 14 Year
  Sex: Male
  Weight: 53.1 kg

DRUGS (2)
  1. TAMIFLU [Suspect]
     Indication: INFLUENZA
     Route: 048
     Dates: start: 20050117, end: 20050118
  2. PHENERGAN [Concomitant]
     Indication: INFLUENZA
     Route: 048
     Dates: start: 20050117

REACTIONS (4)
  - ANAPHYLACTIC REACTION [None]
  - BLOOD PRESSURE INCREASED [None]
  - PYREXIA [None]
  - VOMITING [None]
